FAERS Safety Report 13550445 (Version 1)
Quarter: 2017Q2

REPORT INFORMATION
  Report Type: Spontaneous
  Country: US (occurrence: US)
  Receive Date: 20170516
  Receipt Date: 20170516
  Transmission Date: 20170830
  Serious: Yes (Death)
  Sender: FDA-Public Use
  Company Number: None

PATIENT
  Age: 68 Year
  Sex: Female

DRUGS (1)
  1. TEMOZOLOMIDE CAP 250MG [Suspect]
     Active Substance: TEMOZOLOMIDE
     Dosage: 250MG DAYS 10-14 OF PO
     Route: 048
     Dates: start: 20170222, end: 20170506

REACTIONS (1)
  - Death [None]

NARRATIVE: CASE EVENT DATE: 20170506
